FAERS Safety Report 13386153 (Version 1)
Quarter: 2017Q1

REPORT INFORMATION
  Report Type: Spontaneous
  Country: DE (occurrence: DE)
  Receive Date: 20170330
  Receipt Date: 20170330
  Transmission Date: 20170429
  Serious: Yes (Other)
  Sender: FDA-Public Use
  Company Number: DE-009507513-1703DEU011877

PATIENT
  Age: 78 Year
  Sex: Male

DRUGS (3)
  1. SIMVASTATIN. [Suspect]
     Active Substance: SIMVASTATIN
     Dosage: UNK
     Route: 048
  2. METOPROLOL. [Suspect]
     Active Substance: METOPROLOL
  3. IRBESARTAN. [Suspect]
     Active Substance: IRBESARTAN

REACTIONS (1)
  - Basal cell carcinoma [Unknown]
